FAERS Safety Report 21814826 (Version 1)
Quarter: 2023Q1

REPORT INFORMATION
  Report Type: Report from Study
  Country: US (occurrence: US)
  Receive Date: 20230104
  Receipt Date: 20230104
  Transmission Date: 20230418
  Serious: No
  Sender: FDA-Public Use
  Company Number: US-ABBVIE-4217084

PATIENT
  Sex: Male

DRUGS (1)
  1. RINVOQ [Suspect]
     Active Substance: UPADACITINIB
     Indication: Product used for unknown indication
     Route: 048

REACTIONS (7)
  - Pain [Unknown]
  - SARS-CoV-2 test positive [Unknown]
  - Throat irritation [Unknown]
  - Anosmia [Unknown]
  - Cough [Unknown]
  - Pyrexia [Unknown]
  - Ageusia [Unknown]

NARRATIVE: CASE EVENT DATE: 20220101
